FAERS Safety Report 8909004 (Version 1)
Quarter: 2012Q4

REPORT INFORMATION
  Report Type: 
  Country: US (occurrence: US)
  Receive Date: 20121114
  Receipt Date: 20121114
  Transmission Date: 20130627
  Serious: Yes (Hospitalization, Other)
  Sender: FDA-Public Use
  Company Number: PHEH2012US021031

PATIENT
  Sex: Female

DRUGS (2)
  1. GLEEVEC [Suspect]
     Indication: CHRONIC MYELOID LEUKAEMIA
     Dosage: 400 mg, QD
     Route: 048
  2. GLEEVEC [Suspect]
     Indication: IRON DEFICIENCY ANAEMIA

REACTIONS (9)
  - Road traffic accident [Unknown]
  - Post-traumatic neck syndrome [Unknown]
  - Arthritis [Unknown]
  - Arthralgia [Unknown]
  - Fall [Unknown]
  - Pain [Unknown]
  - Contusion [Unknown]
  - Somnolence [Unknown]
  - Fatigue [Unknown]
